FAERS Safety Report 5605375-3 (Version None)
Quarter: 2008Q1

REPORT INFORMATION
  Report Type: 
  Country: None (occurrence: None)
  Receive Date: 20080123
  Receipt Date: 20080109
  Transmission Date: 20080703
  Serious: Yes (Other)
  Sender: FDA-Public Use
  Company Number: 2007BI011074

PATIENT
  Age: 43 Year
  Sex: Male

DRUGS (4)
  1. TYSABRI [Suspect]
     Indication: MULTIPLE SCLEROSIS
     Dosage: 300 MG; QM; IV
     Route: 042
     Dates: start: 20061026, end: 20071001
  2. SPIRULINA [Concomitant]
  3. VITAMIN CAP [Concomitant]
  4. PREDNISONE TAB [Concomitant]

REACTIONS (4)
  - AUTOIMMUNE HEPATITIS [None]
  - FALL [None]
  - HEPATOCELLULAR INJURY [None]
  - NEPHROLITHIASIS [None]
